FAERS Safety Report 7765190-1 (Version None)
Quarter: 2011Q3

REPORT INFORMATION
  Report Type: 
  Country: None (occurrence: None)
  Receive Date: 20110916
  Receipt Date: 20110902
  Transmission Date: 20111222
  Serious: Yes (Other)
  Sender: FDA-Public Use
  Company Number: 2011SP026389

PATIENT
  Sex: Male
  Weight: 2.268 kg

DRUGS (2)
  1. PEGINTERFERON ALFA-2B [Suspect]
     Indication: MATERNAL EXPOSURE DURING PREGNANCY
     Dosage: UNK;TRPL
  2. RIBAVIRIN [Suspect]
     Indication: MATERNAL EXPOSURE DURING PREGNANCY
     Dosage: UNK;TRPL

REACTIONS (5)
  - MATERNAL DRUGS AFFECTING FOETUS [None]
  - JAUNDICE NEONATAL [None]
  - CAESAREAN SECTION [None]
  - HAEMOGLOBIN DECREASED [None]
  - PREMATURE BABY [None]
